FAERS Safety Report 12720860 (Version 4)
Quarter: 2016Q4

REPORT INFORMATION
  Report Type: Report from Study
  Country: US (occurrence: US)
  Receive Date: 20160907
  Receipt Date: 20161010
  Transmission Date: 20170207
  Serious: Yes (Hospitalization, Disabling, Other)
  Sender: FDA-Public Use
  Company Number: US-GILEAD-2016-0232127

PATIENT
  Age: 52 Year
  Sex: Female

DRUGS (6)
  1. WARFARIN [Concomitant]
     Active Substance: WARFARIN
  2. AMBRISENTAN [Suspect]
     Active Substance: AMBRISENTAN
     Indication: PULMONARY ARTERIAL HYPERTENSION
     Dosage: 10 MG, QD
     Route: 065
     Dates: start: 20090803
  3. SILDENAFIL. [Concomitant]
     Active Substance: SILDENAFIL
  4. REVATIO [Concomitant]
     Active Substance: SILDENAFIL CITRATE
  5. COUMADIN [Concomitant]
     Active Substance: WARFARIN SODIUM
  6. VELETRI [Concomitant]
     Active Substance: EPOPROSTENOL

REACTIONS (5)
  - Fluid retention [Recovered/Resolved]
  - Weight increased [Unknown]
  - Oedema peripheral [Recovered/Resolved]
  - Cardiac failure [Unknown]
  - Device leakage [Recovered/Resolved]
